FAERS Safety Report 11713200 (Version 3)
Quarter: 2016Q1

REPORT INFORMATION
  Report Type: Spontaneous
  Country: US (occurrence: US)
  Receive Date: 20151109
  Receipt Date: 20160210
  Transmission Date: 20160525
  Serious: Yes (Other)
  Sender: FDA-Public Use
  Company Number: US-BEH-2015055456

PATIENT
  Sex: Female
  Weight: 81 kg

DRUGS (18)
  1. CYMBALTA [Concomitant]
     Active Substance: DULOXETINE HYDROCHLORIDE
  2. VALIUM [Concomitant]
     Active Substance: DIAZEPAM
  3. PYRIDIUM [Concomitant]
     Active Substance: PHENAZOPYRIDINE
  4. LUNESTA [Concomitant]
     Active Substance: ESZOPICLONE
  5. EPIPEN [Concomitant]
     Active Substance: EPINEPHRINE
  6. ZOFRAN [Concomitant]
     Active Substance: ONDANSETRON HYDROCHLORIDE
  7. HIZENTRA [Suspect]
     Active Substance: HUMAN IMMUNOGLOBULIN G
     Indication: IMMUNODEFICIENCY COMMON VARIABLE
     Dosage: 4 GM 20 ML VIALS
     Route: 058
  8. HIZENTRA [Suspect]
     Active Substance: HUMAN IMMUNOGLOBULIN G
     Route: 058
  9. ALBUTEROL SULFATE. [Concomitant]
     Active Substance: ALBUTEROL SULFATE
  10. SOMA [Concomitant]
     Active Substance: CARISOPRODOL
  11. HIZENTRA [Suspect]
     Active Substance: HUMAN IMMUNOGLOBULIN G
     Indication: IMMUNODEFICIENCY COMMON VARIABLE
     Route: 058
     Dates: start: 20140926
  12. ACETAMINOPHEN. [Concomitant]
     Active Substance: ACETAMINOPHEN
  13. IMITREX [Concomitant]
     Active Substance: SUMATRIPTAN SUCCINATE
  14. VALTREX [Concomitant]
     Active Substance: VALACYCLOVIR HYDROCHLORIDE
  15. DIPHENHYDRAMINE. [Concomitant]
     Active Substance: DIPHENHYDRAMINE
  16. OXYCODONE [Concomitant]
     Active Substance: OXYCODONE
  17. SINGULAIR [Concomitant]
     Active Substance: MONTELUKAST SODIUM
  18. ALEVE [Concomitant]
     Active Substance: NAPROXEN SODIUM

REACTIONS (7)
  - Headache [Unknown]
  - Influenza [Unknown]
  - Nausea [Unknown]
  - Meningitis herpes [Unknown]
  - Influenza like illness [Unknown]
  - Chills [Unknown]
  - Herpes virus infection [Unknown]
